FAERS Safety Report 8257497-9 (Version None)
Quarter: 2012Q2

REPORT INFORMATION
  Report Type: 
  Country: None (occurrence: None)
  Receive Date: 20120403
  Receipt Date: 20120109
  Transmission Date: 20120825
  Serious: Yes (Hospitalization, Disabling, Other)
  Sender: FDA-Public Use
  Company Number: US-ROCHE-470904

PATIENT
  Sex: Male
  Weight: 92.5 kg

DRUGS (2)
  1. ACCUTANE [Suspect]
     Indication: ACNE CYSTIC
     Dosage: TAKEN FOR TWO CYCLES.
     Route: 065
  2. DRYSOL [Concomitant]
     Dosage: GENERIC REPORTED AS LUMINIUM CHLORIDE HEXAHYDRATE. DOSAGE REGIMEN: DAILY.
     Route: 061

REACTIONS (19)
  - ANXIETY [None]
  - DEPRESSED MOOD [None]
  - ASTHMA [None]
  - INFLAMMATORY BOWEL DISEASE [None]
  - MORBID THOUGHTS [None]
  - COLITIS ULCERATIVE [None]
  - MEGACOLON [None]
  - STRESS [None]
  - IRRITABLE BOWEL SYNDROME [None]
  - POUCHITIS [None]
  - PANIC ATTACK [None]
  - HYPERTENSION [None]
  - METHAEMOGLOBINAEMIA [None]
  - TENSION HEADACHE [None]
  - INTESTINAL MASS [None]
  - ANAL FISSURE [None]
  - ANAL ABSCESS [None]
  - OBSESSIVE-COMPULSIVE DISORDER [None]
  - BLOOD TRIGLYCERIDES INCREASED [None]
